FAERS Safety Report 4474524-5 (Version None)
Quarter: 2004Q4

REPORT INFORMATION
  Report Type: 
  Country: None (occurrence: None)
  Receive Date: 20041008
  Receipt Date: 20040917
  Transmission Date: 20050328
  Serious: Yes (Life-Threatening, Hospitalization)
  Sender: FDA-Public Use
  Company Number: US_0409105253

PATIENT
  Age: 64 Year
  Sex: Male
  Weight: 94 kg

DRUGS (4)
  1. STRATTERA [Suspect]
     Indication: MAJOR DEPRESSION
     Dosage: 80 MG/1 IN THE MORNING
     Dates: start: 20040607, end: 20040709
  2. LEXAPRO [Concomitant]
  3. BETHANECHOL [Concomitant]
  4. THYROID TAB [Concomitant]

REACTIONS (3)
  - ATRIAL FLUTTER [None]
  - DIZZINESS EXERTIONAL [None]
  - PALPITATIONS [None]
